FAERS Safety Report 7376741-3 (Version None)
Quarter: 2011Q1

REPORT INFORMATION
  Report Type: 
  Country: None (occurrence: None)
  Receive Date: 20110325
  Receipt Date: 20110321
  Transmission Date: 20110831
  Serious: Yes (Death, Hospitalization, Other)
  Sender: FDA-Public Use
  Company Number: US-B.I. PHARMACEUTICALS,INC./RIDGEFIELD-2010-BP-10969BP

PATIENT
  Sex: Male

DRUGS (25)
  1. FERROUS SULFATE TAB [Concomitant]
     Dosage: 975 MG
     Route: 048
  2. VYTORIN [Concomitant]
     Route: 048
  3. HUMALIN R 500 INSULIN [Concomitant]
     Route: 058
  4. DIGOXIN [Concomitant]
     Dosage: 0.125 MG
     Route: 048
  5. COUMADIN [Concomitant]
     Dosage: 5MG AT BEDTIME TUES, THURS, SAT, 2.5MG MON, WED, FRI, SUN
     Route: 048
  6. PRILOSEC [Concomitant]
     Dosage: 20 MG
     Route: 048
  7. LASIX [Concomitant]
     Route: 042
  8. TOPROL-XL [Concomitant]
     Dosage: 100 MG
     Route: 048
  9. SPIRIVA [Suspect]
     Indication: CHRONIC OBSTRUCTIVE PULMONARY DISEASE
     Dosage: 18 MCG
     Route: 055
     Dates: start: 20071001, end: 20100107
  10. BUMEX [Concomitant]
     Dosage: 3 MG
     Route: 048
  11. DIAMOX [Concomitant]
     Dosage: 250 MG
     Route: 048
  12. COUMADIN [Concomitant]
     Route: 048
  13. TARCEVA [Concomitant]
  14. OXYGEN [Concomitant]
     Indication: CHRONIC OBSTRUCTIVE PULMONARY DISEASE
     Route: 055
     Dates: end: 20100107
  15. TERAZOSIN HCL [Concomitant]
     Dosage: 2 MG
     Route: 048
  16. K-DUR (POTASSIUM) [Concomitant]
     Dosage: 40 MEQ
     Route: 048
  17. CARDIZEM [Concomitant]
     Dosage: 240 MG
     Route: 048
  18. CYMBALTA [Concomitant]
     Dosage: 90 MG
     Route: 048
  19. LOVENOX [Concomitant]
     Dosage: 200 MG
     Route: 058
  20. ASPIRIN [Concomitant]
     Dosage: 81 MG
  21. ADVAIR DISKUS 100/50 [Concomitant]
     Indication: CHRONIC OBSTRUCTIVE PULMONARY DISEASE
     Route: 055
     Dates: end: 20100107
  22. BENTYL [Concomitant]
     Dosage: 10 MG
     Route: 048
  23. ALDACTONE [Concomitant]
     Dosage: 50 MG
     Route: 048
  24. PREDNISONE [Concomitant]
     Dosage: 20 MG
     Route: 048
  25. FLAGYL [Concomitant]
     Dosage: 1500 MG
     Route: 048

REACTIONS (34)
  - BLISTER [None]
  - HAEMOGLOBIN DECREASED [None]
  - DYSPNOEA [None]
  - ASBESTOSIS [None]
  - AGGRESSION [None]
  - EXCORIATION [None]
  - PNEUMONIA [None]
  - PLEURAL EFFUSION [None]
  - OEDEMA PERIPHERAL [None]
  - RESPIRATORY DISTRESS [None]
  - PULMONARY FIBROSIS [None]
  - PULMONARY OEDEMA [None]
  - PLATELET COUNT DECREASED [None]
  - WEIGHT INCREASED [None]
  - BLOOD TEST ABNORMAL [None]
  - DEPRESSION [None]
  - DIARRHOEA [None]
  - ASTHENIA [None]
  - ABASIA [None]
  - SKIN HAEMORRHAGE [None]
  - WHEEZING [None]
  - DECUBITUS ULCER [None]
  - RESPIRATORY ARREST [None]
  - CHEST PAIN [None]
  - DIVERTICULUM [None]
  - MUSCLE SPASMS [None]
  - DIZZINESS [None]
  - BLOOD GLUCOSE DECREASED [None]
  - DYSKINESIA [None]
  - BRONCHIAL OBSTRUCTION [None]
  - NON-SMALL CELL LUNG CANCER [None]
  - WEIGHT DECREASED [None]
  - PULMONARY CONGESTION [None]
  - TREMOR [None]
